FAERS Safety Report 9116594 (Version 1)
Quarter: 2013Q1

REPORT INFORMATION
  Report Type: Report from Study
  Country: IL (occurrence: IL)
  Receive Date: 20130225
  Receipt Date: 20130225
  Transmission Date: 20140127
  Serious: Yes (Hospitalization, Other)
  Sender: FDA-Public Use
  Company Number: IL-ABBOTT-13P-082-1051606-00

PATIENT
  Sex: 0
  Weight: 62 kg

DRUGS (1)
  1. KALETRA [Suspect]
     Indication: HIV INFECTION
     Dosage: STRENGTH: 200/50MG TABS, DOSE 400/100MG BID
     Route: 048
     Dates: start: 20091224

REACTIONS (3)
  - General physical health deterioration [Recovered/Resolved]
  - Nephrolithiasis [Recovered/Resolved]
  - Hydronephrosis [Recovered/Resolved]
